FAERS Safety Report 19763521 (Version 2)
Quarter: 2022Q1

REPORT INFORMATION
  Report Type: Spontaneous
  Country: JP (occurrence: JP)
  Receive Date: 20210830
  Receipt Date: 20220208
  Transmission Date: 20220423
  Serious: Yes (Other)
  Sender: FDA-Public Use
  Company Number: JP-LUPIN PHARMACEUTICALS INC.-2021-15938

PATIENT
  Age: 56 Year
  Sex: Female

DRUGS (1)
  1. POTASSIUM [Suspect]
     Active Substance: POTASSIUM
     Indication: Basedow^s disease
     Dosage: 38.2 MILLIGRAM, QD
     Route: 065

REACTIONS (1)
  - Thyroiditis [Recovered/Resolved]
